FAERS Safety Report 20782228 (Version 2)
Quarter: 2022Q2

REPORT INFORMATION
  Report Type: Spontaneous
  Country: US (occurrence: None)
  Receive Date: 20220504
  Receipt Date: 20220506
  Transmission Date: 20220721
  Serious: No
  Sender: FDA-Public Use
  Company Number: 2022A171430

PATIENT
  Sex: Male
  Weight: 80.3 kg

DRUGS (2)
  1. BREZTRI [Suspect]
     Active Substance: BUDESONIDE\FORMOTEROL\GLYCOPYRROLATE
     Indication: Chronic obstructive pulmonary disease
     Dosage: 1 PUFF IN THE MORNING AND 1 PUFF AT NIGHT,
     Route: 055
     Dates: start: 20220324
  2. ALBUTEROL [Concomitant]
     Active Substance: ALBUTEROL
     Dosage: EVERY 4 HOURS
     Route: 065

REACTIONS (10)
  - Road traffic accident [Unknown]
  - Migraine [Unknown]
  - Weight increased [Unknown]
  - Weight fluctuation [Unknown]
  - Flatulence [Unknown]
  - Reading disorder [Unknown]
  - Wrong technique in device usage process [Unknown]
  - Off label use [Unknown]
  - Incorrect dose administered by device [Unknown]
  - Device malfunction [Unknown]
